FAERS Safety Report 16397137 (Version 1)
Quarter: 2019Q2

REPORT INFORMATION
  Report Type: Spontaneous
  Country: TR (occurrence: TR)
  Receive Date: 20190606
  Receipt Date: 20190606
  Transmission Date: 20190711
  Serious: Yes (Hospitalization)
  Sender: FDA-Public Use
  Company Number: TR-MICRO LABS LIMITED-ML2019-01376

PATIENT
  Age: 68 Year
  Sex: Female

DRUGS (7)
  1. AMOXICILLIN/CLAVULANIC ACID [Suspect]
     Active Substance: AMOXICILLIN\CLAVULANIC ACID
     Indication: RESPIRATORY TRACT INFECTION
     Dosage: 2 WEEKS AGO
     Route: 048
  2. DIGOXIN. [Interacting]
     Active Substance: DIGOXIN
     Indication: CORONARY ARTERY DISEASE
  3. FUROSEMIDE. [Concomitant]
     Active Substance: FUROSEMIDE
     Indication: CARDIAC FAILURE CONGESTIVE
     Dosage: FOR TWO YEARS
  4. WARFARIN [Interacting]
     Active Substance: WARFARIN
     Indication: CARDIAC FAILURE CONGESTIVE
     Dosage: FOR TWO YEARS
  5. DIGOXIN. [Interacting]
     Active Substance: DIGOXIN
     Indication: CARDIAC FAILURE CONGESTIVE
     Dosage: FOR TWO YEARS
  6. WARFARIN [Interacting]
     Active Substance: WARFARIN
     Indication: CORONARY ARTERY DISEASE
  7. FUROSEMIDE. [Concomitant]
     Active Substance: FUROSEMIDE
     Indication: CORONARY ARTERY DISEASE

REACTIONS (3)
  - Choroidal haemorrhage [Recovered/Resolved]
  - Drug interaction [Recovered/Resolved]
  - International normalised ratio increased [Recovered/Resolved]
